FAERS Safety Report 10716411 (Version 1)
Quarter: 2015Q1

REPORT INFORMATION
  Report Type: Spontaneous
  Country: US (occurrence: None)
  Receive Date: 20150115
  Receipt Date: 20150115
  Transmission Date: 20150721
  Serious: Yes (Other)
  Sender: FDA-Public Use
  Company Number: None

PATIENT
  Age: 56 Year
  Sex: Male
  Weight: 81.65 kg

DRUGS (1)
  1. XELODA [Suspect]
     Active Substance: CAPECITABINE
     Dosage: ORAL  BID X5D/WK
     Route: 048
     Dates: start: 20141103

REACTIONS (2)
  - Rash [None]
  - Nausea [None]

NARRATIVE: CASE EVENT DATE: 20141217
